FAERS Safety Report 4948309-7 (Version None)
Quarter: 2006Q1

REPORT INFORMATION
  Report Type: 
  Country: None (occurrence: None)
  Receive Date: 20060320
  Receipt Date: 20060216
  Transmission Date: 20060701
  Serious: Yes (Hospitalization)
  Sender: FDA-Public Use
  Company Number: AU-ROCHE-436833

PATIENT
  Age: 61 Year
  Sex: Female
  Weight: 63 kg

DRUGS (11)
  1. CAPECITABINE [Suspect]
     Dosage: TAKEN DAILY FOR 14 DAYS.
     Route: 065
     Dates: start: 20060201
  2. BEVACIZUMAB [Suspect]
     Dosage: TAKEN ON DAY 1 OF CYCLE.
     Route: 065
     Dates: start: 20060201
  3. MITOMYCIN [Suspect]
     Dosage: TAKEN ON DAY 1 OF CYCLE.
     Route: 065
     Dates: start: 20060201
  4. COLOXYL WITH SENNA [Concomitant]
     Indication: PROPHYLAXIS
     Route: 048
     Dates: start: 20060115
  5. INOSITOL [Concomitant]
     Indication: PROPHYLAXIS
     Route: 048
     Dates: start: 20030615
  6. GARLIC + HORSERADISH [Concomitant]
     Indication: PROPHYLAXIS
     Route: 048
     Dates: start: 20030615
  7. FISH OIL [Concomitant]
     Indication: PROPHYLAXIS
     Route: 048
     Dates: start: 20050115
  8. ATACAND HCT [Concomitant]
     Route: 048
     Dates: start: 20010615
  9. MULTIVITAMIN NOS [Concomitant]
     Indication: PROPHYLAXIS
     Route: 048
     Dates: start: 20040615
  10. SIMVASTATIN [Concomitant]
     Route: 048
     Dates: start: 20010615
  11. TEMAZEPAM [Concomitant]
     Indication: PROPHYLAXIS
     Route: 048
     Dates: start: 20030615

REACTIONS (5)
  - BLOOD CREATININE INCREASED [None]
  - DEHYDRATION [None]
  - FATIGUE [None]
  - MUCOSAL INFLAMMATION [None]
  - VOMITING [None]
